FAERS Safety Report 21686060 (Version 2)
Quarter: 2022Q4

REPORT INFORMATION
  Report Type: Report from Study
  Country: NO (occurrence: None)
  Receive Date: 20221206
  Receipt Date: 20221214
  Transmission Date: 20230113
  Serious: Yes (Hospitalization)
  Sender: FDA-Public Use
  Company Number: NO-ROCHE-3230731

PATIENT
  Age: 72 Year
  Sex: Male

DRUGS (10)
  1. ATEZOLIZUMAB [Suspect]
     Active Substance: ATEZOLIZUMAB
     Indication: Neoplasm malignant
     Route: 042
     Dates: start: 20221012
  2. ATEZOLIZUMAB [Suspect]
     Active Substance: ATEZOLIZUMAB
     Route: 042
     Dates: start: 20221109
  3. DICLOXACILLIN [Concomitant]
     Active Substance: DICLOXACILLIN
     Indication: Skin infection
     Dates: start: 20220203, end: 20221031
  4. DICLOXACILLIN [Concomitant]
     Active Substance: DICLOXACILLIN
     Dates: start: 20221121, end: 20221129
  5. DICLOXACILLIN [Concomitant]
     Active Substance: DICLOXACILLIN
     Dates: start: 20221130
  6. UREA [Concomitant]
     Active Substance: UREA
     Indication: Skin infection
     Dates: start: 20221103
  7. LOCOID LIPID [Concomitant]
     Indication: Skin infection
     Dates: start: 20221103
  8. OVIXAN [Concomitant]
     Indication: Skin infection
     Dates: start: 20221103
  9. ZOPICLONE [Concomitant]
     Active Substance: ZOPICLONE
     Indication: Insomnia
     Dates: start: 20221119, end: 20221120
  10. PARACET (NORWAY) [Concomitant]
     Indication: Pain
     Dates: start: 20221118

REACTIONS (1)
  - Skin infection [Unknown]

NARRATIVE: CASE EVENT DATE: 20221118
